FAERS Safety Report 21701280 (Version 1)
Quarter: 2022Q4

REPORT INFORMATION
  Report Type: Spontaneous
  Country: FR (occurrence: FR)
  Receive Date: 20221208
  Receipt Date: 20221208
  Transmission Date: 20230112
  Serious: Yes (Hospitalization)
  Sender: FDA-Public Use
  Company Number: None

PATIENT
  Age: 59 Year
  Sex: Female

DRUGS (3)
  1. LEVOFLOXACIN [Suspect]
     Active Substance: LEVOFLOXACIN
     Indication: Infection
     Dosage: / 12H  , UNIT DOSE : 500 MG   , FREQUENCY TIME :  12 HOUR  , DURATION : 1 DAY
     Dates: start: 20221109, end: 20221110
  2. CLINDAMYCIN HYDROCHLORIDE [Suspect]
     Active Substance: CLINDAMYCIN HYDROCHLORIDE
     Indication: Infection
     Dosage: DURATION : 5 DAYS
     Dates: start: 20221110, end: 20221114
  3. METRONIDAZOLE [Suspect]
     Active Substance: METRONIDAZOLE
     Indication: Infection
     Dosage: / 8H ,UNIT DOSE :  500 MG  , FREQUENCY TIME : 8 HOUR   , DURATION :  1 DAY
     Dates: start: 20221109, end: 20221110

REACTIONS (1)
  - Acute generalised exanthematous pustulosis [Not Recovered/Not Resolved]

NARRATIVE: CASE EVENT DATE: 20221113
